FAERS Safety Report 25867594 (Version 1)
Quarter: 2025Q4

REPORT INFORMATION
  Report Type: Spontaneous
  Country: EU (occurrence: EU)
  Receive Date: 20251001
  Receipt Date: 20251001
  Transmission Date: 20260117
  Serious: Yes (Life-Threatening)
  Sender: REGENERON
  Company Number: None

PATIENT
  Age: 84 Year
  Sex: Male

DRUGS (2)
  1. EYLEA HD [Suspect]
     Active Substance: AFLIBERCEPT
     Indication: Age-related macular degeneration
     Dosage: 114 MG, 114.3 MG/ML
     Route: 031
     Dates: start: 20250718, end: 20250718
  2. LUCENTIS [Suspect]
     Active Substance: RANIBIZUMAB
     Indication: Age-related macular degeneration
     Dosage: 1 DF
     Route: 031
     Dates: start: 20220101, end: 20250619

REACTIONS (1)
  - Vascular stent stenosis [Recovering/Resolving]

NARRATIVE: CASE EVENT DATE: 20250718
